FAERS Safety Report 26191168 (Version 1)
Quarter: 2025Q4

REPORT INFORMATION
  Report Type: Report from Study
  Country: US (occurrence: US)
  Receive Date: 20251223
  Receipt Date: 20251223
  Transmission Date: 20260117
  Serious: Yes (Hospitalization)
  Sender: REGENERON
  Company Number: US-REGENERON PHARMACEUTICALS, INC.-2025-200038

PATIENT
  Sex: Female

DRUGS (4)
  1. EYLEA HD [Suspect]
     Active Substance: AFLIBERCEPT
     Indication: Diabetic retinopathy
     Dosage: 0.07 ML, EVERY 8 WEEKS (FORMULATION: HD VIAL, STRENGTH: 8MG/0.07ML)
  2. EYLEA HD [Suspect]
     Active Substance: AFLIBERCEPT
     Indication: Diabetic retinal oedema
  3. VABYSMO [Concomitant]
     Active Substance: FARICIMAB-SVOA
     Indication: Diabetic retinopathy
     Dosage: UNK
  4. VABYSMO [Concomitant]
     Active Substance: FARICIMAB-SVOA
     Indication: Diabetic retinal oedema

REACTIONS (1)
  - Hospitalisation [Unknown]

NARRATIVE: CASE EVENT DATE: 20251101
